FAERS Safety Report 19723924 (Version 1)
Quarter: 2021Q3

REPORT INFORMATION
  Report Type: Spontaneous
  Country: US (occurrence: US)
  Receive Date: 20210819
  Receipt Date: 20210819
  Transmission Date: 20211014
  Serious: Yes (Other)
  Sender: FDA-Public Use
  Company Number: US-HIKMA PHARMACEUTICALS USA INC.-US-H14001-21-03656

PATIENT
  Age: 51 Year
  Sex: Female

DRUGS (1)
  1. PENICILLIN [Suspect]
     Active Substance: PENICILLIN
     Indication: ACTINOMYCOSIS
     Dosage: UNKNOWN
     Route: 065

REACTIONS (3)
  - Throat tightness [Unknown]
  - Swelling [Unknown]
  - Drug hypersensitivity [Unknown]
